FAERS Safety Report 17578959 (Version 1)
Quarter: 2020Q1

REPORT INFORMATION
  Report Type: Spontaneous
  Country: US (occurrence: US)
  Receive Date: 20200325
  Receipt Date: 20200325
  Transmission Date: 20200409
  Serious: No
  Sender: FDA-Public Use
  Company Number: US-ASTRAZENECA-2020SE33579

PATIENT
  Sex: Male
  Weight: 109.3 kg

DRUGS (1)
  1. BYDUREON BCISE [Suspect]
     Active Substance: EXENATIDE
     Indication: DIABETES MELLITUS
     Route: 058

REACTIONS (4)
  - Injection site nodule [Not Recovered/Not Resolved]
  - Injection site pain [Unknown]
  - Device leakage [Unknown]
  - Weight decreased [Not Recovered/Not Resolved]
